FAERS Safety Report 5399172-4 (Version None)
Quarter: 2007Q3

REPORT INFORMATION
  Report Type: 
  Country: None (occurrence: None)
  Receive Date: 20070727
  Receipt Date: 20070717
  Transmission Date: 20080115
  Serious: Yes (Hospitalization)
  Sender: FDA-Public Use
  Company Number: US-ELI_LILLY_AND_COMPANY-US200707004329

PATIENT
  Age: 54 Year
  Sex: Female
  Weight: 99.773 kg

DRUGS (6)
  1. BYETTA [Suspect]
     Indication: TYPE 2 DIABETES MELLITUS
     Dosage: 5 MG, 2/D
     Route: 058
     Dates: start: 20070706, end: 20070707
  2. BYETTA [Suspect]
     Dosage: 5 MG, 2/D
     Route: 058
     Dates: start: 20070712
  3. INSULIN [Concomitant]
     Indication: DIABETES MELLITUS
     Dates: start: 19930101, end: 20070706
  4. GLIPIZIDE [Concomitant]
     Indication: DIABETES MELLITUS
     Dates: end: 20070706
  5. METFORMIN HCL [Concomitant]
     Indication: DIABETES MELLITUS
     Dates: end: 20070706
  6. ZOLOFT [Concomitant]
     Indication: DEPRESSION

REACTIONS (5)
  - AMNESIA [None]
  - DECREASED APPETITE [None]
  - PAIN [None]
  - URINARY TRACT INFECTION [None]
  - WEIGHT DECREASED [None]
